FAERS Safety Report 6429363-2 (Version None)
Quarter: 2009Q4

REPORT INFORMATION
  Report Type: 
  Country: None (occurrence: None)
  Receive Date: 20091105
  Receipt Date: 20090529
  Transmission Date: 20100525
  Serious: No
  Sender: FDA-Public Use
  Company Number: US-ABBOTT-09P-163-0574506-00

PATIENT
  Sex: Male
  Weight: 86.26 kg

DRUGS (7)
  1. KALETRA [Suspect]
     Indication: HIV INFECTION
     Dates: start: 20070101
  2. TRUVADA [Concomitant]
     Indication: HIV INFECTION
     Route: 048
  3. HYDROCHLOROTHIAZIDE [Concomitant]
     Indication: HYPERTENSION
     Route: 048
  4. LISINOPRIL [Concomitant]
     Indication: HYPERTENSION
  5. RANITIDINE [Concomitant]
     Indication: BLOOD CHOLESTEROL INCREASED
  6. PRAVASTATIN [Concomitant]
     Indication: BLOOD CHOLESTEROL INCREASED
     Route: 048
  7. AMITRIPTYLINE [Concomitant]
     Indication: PAIN
     Route: 048

REACTIONS (2)
  - ASTHMA [None]
  - LUNG INFECTION [None]
